FAERS Safety Report 7978737-7 (Version None)
Quarter: 2011Q4

REPORT INFORMATION
  Report Type: 
  Country: None (occurrence: None)
  Receive Date: 20111214
  Receipt Date: 20111206
  Transmission Date: 20120403
  Serious: Yes (Hospitalization)
  Sender: FDA-Public Use
  Company Number: US-ASTELLAS-2011US008233

PATIENT
  Sex: Female

DRUGS (1)
  1. LEXISCAN [Suspect]
     Indication: SCAN MYOCARDIAL PERFUSION
     Dosage: UNK
     Route: 065
     Dates: start: 20111205, end: 20111205

REACTIONS (4)
  - TONGUE OEDEMA [None]
  - MALAISE [None]
  - DYSPNOEA [None]
  - HYPERSENSITIVITY [None]
